FAERS Safety Report 6827421-1 (Version None)
Quarter: 2010Q3

REPORT INFORMATION
  Report Type: 
  Country: None (occurrence: None)
  Receive Date: 20100709
  Receipt Date: 20070112
  Transmission Date: 20110219
  Serious: No
  Sender: FDA-Public Use
  Company Number: US-PFIZER INC-2007005119

PATIENT
  Sex: Male
  Weight: 117.93 kg

DRUGS (5)
  1. CHANTIX [Suspect]
     Indication: SMOKING CESSATION THERAPY
     Dates: start: 20070105
  2. BUPROPION HCL [Concomitant]
     Indication: BIPOLAR DISORDER
  3. DEPAKOTE [Concomitant]
     Dates: start: 19960101
  4. METFORMIN HCL [Concomitant]
     Indication: TYPE 2 DIABETES MELLITUS
  5. LIPITOR [Concomitant]

REACTIONS (6)
  - DISSOCIATION [None]
  - FATIGUE [None]
  - FLATULENCE [None]
  - INSOMNIA [None]
  - NAUSEA [None]
  - NIGHTMARE [None]
